FAERS Safety Report 8581430-3 (Version None)
Quarter: 2012Q3

REPORT INFORMATION
  Report Type: 
  Country: None (occurrence: None)
  Receive Date: 20120809
  Receipt Date: 20120801
  Transmission Date: 20120928
  Serious: Yes (Other)
  Sender: FDA-Public Use
  Company Number: CN-BRISTOL-MYERS SQUIBB COMPANY-16616922

PATIENT
  Age: 66 Year
  Sex: Male

DRUGS (2)
  1. TELBIVUDINE [Suspect]
     Dates: start: 20100101, end: 20110101
  2. ENTECAVIR [Suspect]
     Indication: HEPATITIS B VIRUS TEST
     Route: 048
     Dates: start: 20080401

REACTIONS (2)
  - LUNG ADENOCARCINOMA [None]
  - HEPATIC NEOPLASM MALIGNANT [None]
